FAERS Safety Report 21596788 (Version 1)
Quarter: 2022Q4

REPORT INFORMATION
  Report Type: Report from Study
  Country: US (occurrence: US)
  Receive Date: 20221115
  Receipt Date: 20221115
  Transmission Date: 20230113
  Serious: No
  Sender: FDA-Public Use
  Company Number: US-ABBVIE-4170661

PATIENT
  Age: 69 Year
  Sex: Female
  Weight: 81.646 kg

DRUGS (13)
  1. HUMIRA [Suspect]
     Active Substance: ADALIMUMAB
     Indication: Rheumatoid arthritis
     Route: 058
     Dates: start: 2020, end: 2022
  2. HUMIRA [Suspect]
     Active Substance: ADALIMUMAB
     Route: 058
     Dates: start: 2022
  3. VALSARTAN [Concomitant]
     Active Substance: VALSARTAN
     Indication: Product used for unknown indication
     Route: 065
  4. GEMFIBROZIL [Concomitant]
     Active Substance: GEMFIBROZIL
     Indication: Product used for unknown indication
     Route: 065
  5. ALLOPURINOL [Concomitant]
     Active Substance: ALLOPURINOL
     Indication: Product used for unknown indication
     Route: 065
  6. Moderna Covid19 Vaccine [Concomitant]
     Indication: COVID-19 immunisation
     Dosage: 1IN1
     Route: 030
     Dates: start: 20210301, end: 20210301
  7. Moderna Covid19 Vaccine [Concomitant]
     Indication: COVID-19 immunisation
     Dosage: 1IN1
     Route: 030
  8. Moderna Covid19 Vaccine [Concomitant]
     Indication: COVID-19 immunisation
     Dosage: 1IN1
     Route: 030
  9. Moderna Covid19 Vaccine [Concomitant]
     Indication: COVID-19 immunisation
     Dosage: 1IN1
     Route: 030
  10. ROSUVASTATIN [Concomitant]
     Active Substance: ROSUVASTATIN
     Indication: Product used for unknown indication
     Route: 065
  11. TRESIBA [Concomitant]
     Active Substance: INSULIN DEGLUDEC
     Indication: Product used for unknown indication
     Route: 065
  12. LISINOPRIL [Concomitant]
     Active Substance: LISINOPRIL
     Indication: Product used for unknown indication
     Route: 065
  13. POTASSIUM [Concomitant]
     Active Substance: POTASSIUM
     Indication: Product used for unknown indication
     Route: 065

REACTIONS (2)
  - Feeling abnormal [Recovered/Resolved]
  - Pneumonia [Recovered/Resolved]

NARRATIVE: CASE EVENT DATE: 20220801
